FAERS Safety Report 10748292 (Version 2)
Quarter: 2015Q1

REPORT INFORMATION
  Report Type: Spontaneous
  Country: JP (occurrence: JP)
  Receive Date: 20150129
  Receipt Date: 20150209
  Transmission Date: 20150721
  Serious: Yes (Death)
  Sender: FDA-Public Use
  Company Number: JP-DSJP-DSJ-2015-100693

PATIENT

DRUGS (18)
  1. LIXIANA TABLETS [Suspect]
     Active Substance: EDOXABAN TOSILATE MONOHYDRATE
     Indication: CEREBROVASCULAR ACCIDENT PROPHYLAXIS
     Dosage: 30 MG, AFTER BREAKFAST
     Route: 048
     Dates: start: 20141213, end: 20141231
  2. NIFEDIPINE. [Concomitant]
     Active Substance: NIFEDIPINE
     Dosage: 5 MG, AS NEEDED
     Route: 065
     Dates: start: 20141222, end: 20141222
  3. DESYREL [Concomitant]
     Active Substance: TRAZODONE HYDROCHLORIDE
     Dosage: 1 DF, BEFORE SLEEP
     Route: 065
     Dates: start: 20141113, end: 20141118
  4. RADICUT [Concomitant]
     Active Substance: EDARAVONE
     Dosage: 2DF/DAY
     Route: 065
     Dates: start: 20141212, end: 20141225
  5. DESYREL [Concomitant]
     Active Substance: TRAZODONE HYDROCHLORIDE
     Dosage: 25 MG, AFTER DINNER, BEFORE SLEEP
     Route: 065
     Dates: start: 20141119, end: 20141212
  6. VESICARE [Concomitant]
     Active Substance: SOLIFENACIN SUCCINATE
     Dosage: 5 MG, AFTER BREAKFAST
     Route: 065
     Dates: start: 20141119, end: 20141231
  7. PURSENNID                          /00142207/ [Concomitant]
     Active Substance: SENNOSIDES A AND B
     Dosage: 24 MG, AS NEEDED
     Route: 065
     Dates: start: 20141215, end: 20141215
  8. HEPAFLUSH [Concomitant]
     Dosage: 3DF/DAY
     Route: 065
     Dates: start: 20141218, end: 20141218
  9. HEPAFLUSH [Concomitant]
     Dosage: 1DF/DAY
     Route: 065
     Dates: start: 20141225, end: 20141225
  10. VESICARE [Concomitant]
     Active Substance: SOLIFENACIN SUCCINATE
     Dosage: 5 MG, AFTER BREAKFAST
     Route: 065
     Dates: start: 20141113, end: 20141118
  11. TAMSULOSIN HYDROCHLORIDE. [Concomitant]
     Active Substance: TAMSULOSIN HYDROCHLORIDE
     Dosage: 0.2 MG, AFTER BREAKFAST
     Route: 065
     Dates: start: 20141119, end: 20150104
  12. HEPAFLUSH [Concomitant]
     Dosage: 2DF/DAY
     Route: 065
     Dates: start: 20141212, end: 20141217
  13. PURSENNID                          /00142207/ [Concomitant]
     Active Substance: SENNOSIDES A AND B
     Dosage: 24MG/DAY
     Route: 065
     Dates: start: 20141201, end: 20141201
  14. HARNAL [Concomitant]
     Active Substance: TAMSULOSIN HYDROCHLORIDE
     Dosage: 0.1 MG, AFTER BREAKFAST
     Route: 065
     Dates: start: 20141113, end: 20141118
  15. HEPAFLUSH [Concomitant]
     Dosage: 2DF/DAY
     Route: 065
     Dates: start: 20141219, end: 20141224
  16. PURSENNID                          /00142207/ [Concomitant]
     Active Substance: SENNOSIDES A AND B
     Dosage: 24MG/DAY
     Route: 065
     Dates: start: 20141121, end: 20141121
  17. DESYREL [Concomitant]
     Active Substance: TRAZODONE HYDROCHLORIDE
     Dosage: 25 MG, AFTER DINNER
     Route: 065
     Dates: start: 20141213, end: 20150104
  18. PURSENNID                          /00142207/ [Concomitant]
     Active Substance: SENNOSIDES A AND B
     Dosage: 24 MG, AS NEEDED
     Route: 065
     Dates: start: 20141222, end: 20141222

REACTIONS (3)
  - Hypertensive emergency [Fatal]
  - Off label use [Unknown]
  - Cerebral haemorrhage [Fatal]

NARRATIVE: CASE EVENT DATE: 20150101
